FAERS Safety Report 7776031-0 (Version None)
Quarter: 2011Q3

REPORT INFORMATION
  Report Type: 
  Country: None (occurrence: None)
  Receive Date: 20110923
  Receipt Date: 20110914
  Transmission Date: 20111222
  Serious: Yes (Other)
  Sender: FDA-Public Use
  Company Number: US-ASTRAZENECA-2011SE55378

PATIENT
  Age: 82 Year
  Sex: Female

DRUGS (4)
  1. ATACAND [Concomitant]
  2. NEXIUM [Suspect]
     Route: 048
  3. TOPROL-XL [Suspect]
     Route: 048
  4. CRESTOR [Suspect]
     Route: 048

REACTIONS (4)
  - MACULAR DEGENERATION [None]
  - BLINDNESS UNILATERAL [None]
  - BLINDNESS [None]
  - VISUAL ACUITY REDUCED [None]
